FAERS Safety Report 8501965-9 (Version None)
Quarter: 2012Q2

REPORT INFORMATION
  Report Type: 
  Country: None (occurrence: None)
  Receive Date: 20120405
  Receipt Date: 20110426
  Transmission Date: 20120825
  Serious: Yes (Other)
  Sender: FDA-Public Use
  Company Number: PHHY2011US23083

PATIENT
  Age: 56 Year
  Sex: Female
  Weight: 98.9 kg

DRUGS (2)
  1. PREDNISONE TAB [Concomitant]
  2. RECLAST [Suspect]
     Indication: OSTEOPOROSIS
     Dosage: 5 MG., INTRAVENOUS
     Route: 042
     Dates: start: 20110310

REACTIONS (7)
  - JOINT SWELLING [None]
  - PAIN [None]
  - PAIN IN EXTREMITY [None]
  - BACK PAIN [None]
  - BURNING SENSATION [None]
  - INFLUENZA LIKE ILLNESS [None]
  - OEDEMA PERIPHERAL [None]
